FAERS Safety Report 7434526-3 (Version None)
Quarter: 2011Q2

REPORT INFORMATION
  Report Type: 
  Country: None (occurrence: None)
  Receive Date: 20110420
  Receipt Date: 20110420
  Transmission Date: 20111010
  Serious: Yes (Hospitalization, Other)
  Sender: FDA-Public Use
  Company Number: None

PATIENT
  Age: 37 Year
  Sex: Female
  Weight: 96.1626 kg

DRUGS (1)
  1. YAZ [Suspect]
     Indication: CONTRACEPTION
     Dosage: 1 TABLET 1 TIME DAILY PO
     Route: 048
     Dates: start: 20041101, end: 20101101

REACTIONS (7)
  - AFFECTIVE DISORDER [None]
  - PALPITATIONS [None]
  - GALLBLADDER DISORDER [None]
  - PAIN IN EXTREMITY [None]
  - SCIATICA [None]
  - DEPRESSED MOOD [None]
  - HEART RATE IRREGULAR [None]
